FAERS Safety Report 9277410 (Version 1)
Quarter: 2013Q2

REPORT INFORMATION
  Report Type: Spontaneous
  Country: US (occurrence: None)
  Receive Date: 20130503
  Receipt Date: 20130503
  Transmission Date: 20140414
  Serious: Yes (Other)
  Sender: FDA-Public Use
  Company Number: None

PATIENT
  Age: 22 Year
  Sex: Male
  Weight: 70.31 kg

DRUGS (1)
  1. LEXAPRO [Suspect]

REACTIONS (3)
  - Product substitution issue [None]
  - Drug withdrawal syndrome [None]
  - Product formulation issue [None]
